FAERS Safety Report 11156016 (Version 1)
Quarter: 2015Q2

REPORT INFORMATION
  Report Type: Spontaneous
  Country: BE (occurrence: BE)
  Receive Date: 20150602
  Receipt Date: 20150602
  Transmission Date: 20150821
  Serious: Yes (Hospitalization)
  Sender: FDA-Public Use
  Company Number: BE-BAYER-2015-278940

PATIENT
  Age: 38 Year
  Sex: Female

DRUGS (1)
  1. AVELOX [Suspect]
     Active Substance: MOXIFLOXACIN HYDROCHLORIDE
     Dosage: 1 DF, QD
     Route: 048

REACTIONS (6)
  - Paraesthesia [None]
  - Paralysis [None]
  - Crying [None]
  - Abdominal distension [None]
  - Flatulence [None]
  - Abdominal pain upper [None]
